FAERS Safety Report 9759547 (Version 2)
Quarter: 2015Q3

REPORT INFORMATION
  Report Type: Spontaneous
  Country: US (occurrence: US)
  Receive Date: 20131216
  Receipt Date: 20150805
  Transmission Date: 20151125
  Serious: No
  Sender: FDA-Public Use
  Company Number: US-GILEAD-2010-0028036

PATIENT
  Age: 60 Year
  Sex: Female

DRUGS (10)
  1. VENTAVIS [Suspect]
     Active Substance: ILOPROST
  2. PRILOSEC [Concomitant]
     Active Substance: OMEPRAZOLE MAGNESIUM
  3. K-DUR [Concomitant]
     Active Substance: POTASSIUM CHLORIDE
  4. DIOVAN [Concomitant]
     Active Substance: VALSARTAN
  5. REVATIO [Concomitant]
     Active Substance: SILDENAFIL CITRATE
  6. COREG [Concomitant]
     Active Substance: CARVEDILOL
  7. PREMARIN [Concomitant]
     Active Substance: ESTROGENS, CONJUGATED
  8. INDAPAMIDE. [Concomitant]
     Active Substance: INDAPAMIDE
  9. LETAIRIS [Suspect]
     Active Substance: AMBRISENTAN
     Indication: PULMONARY ARTERIAL HYPERTENSION
     Route: 048
     Dates: start: 20100216
  10. LASIX [Concomitant]
     Active Substance: FUROSEMIDE

REACTIONS (2)
  - Flushing [Not Recovered/Not Resolved]
  - Oedema peripheral [Not Recovered/Not Resolved]

NARRATIVE: CASE EVENT DATE: 20100216
